FAERS Safety Report 9135427 (Version 1)
Quarter: 2013Q1

REPORT INFORMATION
  Report Type: Spontaneous
  Country: US (occurrence: US)
  Receive Date: 20130304
  Receipt Date: 20130304
  Transmission Date: 20140127
  Serious: Yes (Other)
  Sender: FDA-Public Use
  Company Number: US-PFIZER INC-2013069138

PATIENT
  Age: 21 Year
  Sex: Male
  Weight: 52.61 kg

DRUGS (2)
  1. BENEFIX [Suspect]
     Indication: PROPHYLAXIS
     Dosage: 5 IU/KG, 2X/WEEK
  2. BENEFIX [Suspect]
     Indication: HAEMOPHILIA

REACTIONS (2)
  - Haemorrhage [Unknown]
  - Disease complication [Unknown]
